FAERS Safety Report 9762725 (Version 1)
Quarter: 2013Q4

REPORT INFORMATION
  Report Type: Spontaneous
  Country: GB (occurrence: GB)
  Receive Date: 20131216
  Receipt Date: 20131216
  Transmission Date: 20140711
  Serious: Yes (Disabling)
  Sender: FDA-Public Use
  Company Number: GB-B.I. PHARMACEUTICALS,INC./RIDGEFIELD-2013-BI-41266UK

PATIENT
  Age: 58 Year
  Sex: Male
  Weight: 84 kg

DRUGS (13)
  1. PRADAXA [Suspect]
     Dates: start: 20131122
  2. CEFALEXIN [Concomitant]
     Dates: start: 20131122
  3. DEPO-MEDRONE [Concomitant]
     Dates: start: 20131122, end: 20131123
  4. GLIMEPIRIDE [Concomitant]
  5. MACROGOL [Concomitant]
     Dates: start: 20130822, end: 20131127
  6. OMEPRAZOLE [Concomitant]
     Dates: start: 20131120
  7. RAMIPRIL [Concomitant]
     Dates: start: 20131022
  8. RAMIPRIL [Concomitant]
     Dates: start: 20131022
  9. SECURON [Concomitant]
     Dates: start: 20130822
  10. SERETIDE [Concomitant]
     Dates: start: 20130715
  11. TIOTROPIUM [Concomitant]
     Dates: start: 20130806
  12. VENTOLIN [Concomitant]
     Dates: start: 20130805
  13. WARFARIN SODIUM [Concomitant]
     Dates: start: 20130805

REACTIONS (5)
  - Blood blister [Unknown]
  - Dyspepsia [Recovered/Resolved]
  - Dyspnoea [Recovered/Resolved]
  - Dyspepsia [Unknown]
  - Pruritus [Recovered/Resolved]
